FAERS Safety Report 14755551 (Version 1)
Quarter: 2018Q2

REPORT INFORMATION
  Report Type: Spontaneous
  Country: FR (occurrence: FR)
  Receive Date: 20180413
  Receipt Date: 20180413
  Transmission Date: 20180711
  Serious: Yes (Other)
  Sender: FDA-Public Use
  Company Number: FR-MERCK KGAA-2045715

PATIENT
  Age: 68 Year
  Sex: Female
  Weight: 52 kg

DRUGS (1)
  1. NOVOTHYROX [Suspect]
     Active Substance: LEVOTHYROXINE SODIUM
     Indication: AUTOIMMUNE THYROIDITIS
     Route: 048
     Dates: start: 201706, end: 20170827

REACTIONS (19)
  - Asthenia [Recovered/Resolved]
  - Blood thyroid stimulating hormone normal [Unknown]
  - Hyperhidrosis [Recovered/Resolved]
  - Nightmare [Recovered/Resolved]
  - Hair texture abnormal [Recovered/Resolved]
  - Poor quality sleep [Recovered/Resolved]
  - Depressed mood [Recovered/Resolved]
  - Peripheral coldness [Recovered/Resolved]
  - Diarrhoea [Recovered/Resolved]
  - Salivary gland enlargement [Recovered/Resolved]
  - Vision blurred [Recovered/Resolved]
  - Initial insomnia [Recovered/Resolved]
  - Vertigo positional [Recovered/Resolved]
  - Fatigue [Recovered/Resolved]
  - Alopecia [Recovered/Resolved]
  - Palpitations [Recovered/Resolved]
  - Decreased appetite [Recovered/Resolved]
  - Dry skin [Recovering/Resolving]
  - Blood pressure fluctuation [Recovered/Resolved]

NARRATIVE: CASE EVENT DATE: 201706
